FAERS Safety Report 12287960 (Version 9)
Quarter: 2019Q3

REPORT INFORMATION
  Report Type: Spontaneous
  Country: US (occurrence: US)
  Receive Date: 20160420
  Receipt Date: 20190708
  Transmission Date: 20191004
  Serious: Yes (Death)
  Sender: FDA-Public Use
  Company Number: US-ACTELION PHARMACEUTICALS US, INC.-A-US2016-134695

PATIENT
  Age: 30 Year
  Sex: Female

DRUGS (14)
  1. SORBUTUSS [Concomitant]
  2. CLARITHROMYCIN. [Concomitant]
     Active Substance: CLARITHROMYCIN
     Dosage: 500 MG, QD
  3. RANITIDINE HCL [Concomitant]
     Active Substance: RANITIDINE HYDROCHLORIDE
     Dosage: 300 MG, QD
  4. DIGOXIN. [Concomitant]
     Active Substance: DIGOXIN
     Dosage: 0.25 MG, QD
  5. DOCUSATE [Concomitant]
     Active Substance: DOCUSATE
  6. AMOXICILLIN. [Concomitant]
     Active Substance: AMOXICILLIN
     Dosage: 500 MG, BID
  7. BETAMETHASONE. [Concomitant]
     Active Substance: BETAMETHASONE
  8. SIDERAL [Concomitant]
     Dosage: UNK, QD
  9. OMEPRAZOLE. [Concomitant]
     Active Substance: OMEPRAZOLE
     Dosage: 20 MG, QD
  10. VITAMIN B12 [Concomitant]
     Active Substance: CYANOCOBALAMIN
  11. ALBUTEROL. [Concomitant]
     Active Substance: ALBUTEROL
  12. OPSUMIT [Suspect]
     Active Substance: MACITENTAN
     Indication: PULMONARY ARTERIAL HYPERTENSION
     Dosage: 10 MG, QD
     Route: 048
     Dates: start: 20140908, end: 20190530
  13. COREG [Concomitant]
     Active Substance: CARVEDILOL
     Dosage: 3.125 MG, BID
  14. TYLENOL [Concomitant]
     Active Substance: ACETAMINOPHEN

REACTIONS (14)
  - Gastrointestinal bacterial infection [Not Recovered/Not Resolved]
  - Oropharyngeal pain [Recovered/Resolved]
  - Product dose omission [Unknown]
  - Asthma [Not Recovered/Not Resolved]
  - Psoriasis [Not Recovered/Not Resolved]
  - Vomiting [Not Recovered/Not Resolved]
  - Haemoglobin decreased [Not Recovered/Not Resolved]
  - Dizziness [Recovering/Resolving]
  - Pharyngitis [Recovered/Resolved]
  - Pyrexia [Recovered/Resolved]
  - Influenza [Not Recovered/Not Resolved]
  - Headache [Recovered/Resolved]
  - Death [Fatal]
  - Nausea [Not Recovered/Not Resolved]

NARRATIVE: CASE EVENT DATE: 20160404
